FAERS Safety Report 5352126-6 (Version None)
Quarter: 2007Q2

REPORT INFORMATION
  Report Type: 
  Country: None (occurrence: None)
  Receive Date: 20070606
  Receipt Date: 20070529
  Transmission Date: 20071010
  Serious: Yes (Other)
  Sender: FDA-Public Use
  Company Number: 2006SP007939

PATIENT
  Age: 75 Year
  Sex: Male

DRUGS (6)
  1. ASMANEX TWISTHALER [Suspect]
     Indication: ASTHMA
     Dosage: SEE IMAGE
     Route: 048
     Dates: start: 20060919, end: 20061001
  2. ASMANEX TWISTHALER [Suspect]
     Indication: COUGH
     Dosage: SEE IMAGE
     Route: 048
     Dates: start: 20060919, end: 20061001
  3. ASMANEX TWISTHALER [Suspect]
     Indication: DYSPNOEA
     Dosage: SEE IMAGE
     Route: 048
     Dates: start: 20060919, end: 20061001
  4. ASMANEX TWISTHALER [Suspect]
     Indication: ASTHMA
     Dosage: SEE IMAGE
     Route: 048
     Dates: start: 20061001, end: 20061201
  5. ASMANEX TWISTHALER [Suspect]
     Indication: COUGH
     Dosage: SEE IMAGE
     Route: 048
     Dates: start: 20061001, end: 20061201
  6. ASMANEX TWISTHALER [Suspect]
     Indication: DYSPNOEA
     Dosage: SEE IMAGE
     Route: 048
     Dates: start: 20061001, end: 20061201

REACTIONS (3)
  - AGEUSIA [None]
  - ANOSMIA [None]
  - ORAL FUNGAL INFECTION [None]
